FAERS Safety Report 13763316 (Version 3)
Quarter: 2017Q4

REPORT INFORMATION
  Report Type: Spontaneous
  Country: JP (occurrence: JP)
  Receive Date: 20170718
  Receipt Date: 20171006
  Transmission Date: 20180320
  Serious: Yes (Other)
  Sender: FDA-Public Use
  Company Number: JP-009507513-1706JPN001481J

PATIENT
  Age: 76 Year
  Sex: Male
  Weight: 34 kg

DRUGS (5)
  1. JANUVIA [Suspect]
     Active Substance: SITAGLIPTIN PHOSPHATE
     Indication: DIABETES MELLITUS
     Dosage: 50 MG, ONCE DAILY
     Route: 048
     Dates: start: 20140423, end: 20170612
  2. METGLUCO [Suspect]
     Active Substance: METFORMIN HYDROCHLORIDE
     Indication: DIABETES MELLITUS
     Dosage: UNK
     Route: 048
     Dates: start: 201404
  3. MAGNESIUM OXIDE. [Concomitant]
     Active Substance: MAGNESIUM OXIDE
     Indication: CONSTIPATION
     Dosage: 0.5 G, TWICE DAILY
     Route: 048
     Dates: start: 20100602, end: 20170524
  4. GASMOTIN [Concomitant]
     Active Substance: MOSAPRIDE CITRATE
     Indication: CONSTIPATION
     Dosage: 5 MG, THREE TIMES A DAY
     Route: 048
     Dates: start: 20100602, end: 20170524
  5. MEDET [Concomitant]
     Active Substance: METFORMIN HYDROCHLORIDE
     Indication: DIABETES MELLITUS
     Dosage: 250 MG, TWICE DAILY
     Route: 048
     Dates: start: 20100602, end: 20170524

REACTIONS (2)
  - Pemphigoid [Recovering/Resolving]
  - Pneumonia aspiration [Unknown]

NARRATIVE: CASE EVENT DATE: 201703
